FAERS Safety Report 23505639 (Version 2)
Quarter: 2024Q2

REPORT INFORMATION
  Report Type: Spontaneous
  Country: US (occurrence: US)
  Receive Date: 20240209
  Receipt Date: 20240603
  Transmission Date: 20240716
  Serious: Yes (Other)
  Sender: FDA-Public Use
  Company Number: US-AZURITY PHARMACEUTICALS, INC.-US-2023ARB004935

PATIENT
  Age: 7 Year
  Sex: Male
  Weight: 56.39 kg

DRUGS (2)
  1. ZONISADE [Suspect]
     Active Substance: ZONISAMIDE
     Indication: Epilepsy
     Dosage: UNK
     Route: 048
  2. ZONISADE [Suspect]
     Active Substance: ZONISAMIDE
     Dosage: 3 ML, BID (60MG)
     Route: 048

REACTIONS (5)
  - Seizure [Unknown]
  - Product use issue [Unknown]
  - Product dose omission issue [Unknown]
  - Product packaging quantity issue [Unknown]
  - Product container issue [Unknown]

NARRATIVE: CASE EVENT DATE: 20240501
